FAERS Safety Report 5635018-4 (Version None)
Quarter: 2008Q1

REPORT INFORMATION
  Report Type: 
  Country: None (occurrence: None)
  Receive Date: 20080222
  Receipt Date: 20080211
  Transmission Date: 20080703
  Serious: Yes (Death)
  Sender: FDA-Public Use
  Company Number: DE-GENENTECH-236469

PATIENT
  Sex: Female
  Weight: 67 kg

DRUGS (1)
  1. RANIBIZUMAB [Suspect]
     Indication: MACULAR DEGENERATION
     Dosage: 0.3 MG, 1/MONTH
     Route: 031
     Dates: start: 20061031

REACTIONS (2)
  - AORTIC ANEURYSM RUPTURE [None]
  - PERICARDIAL EFFUSION [None]
